FAERS Safety Report 8863326 (Version 1)
Quarter: 2012Q4

REPORT INFORMATION
  Report Type: Report from Study
  Country: US (occurrence: US)
  Receive Date: 20121025
  Receipt Date: 20121025
  Transmission Date: 20130627
  Serious: Yes (Hospitalization)
  Sender: FDA-Public Use
  Company Number: US-ROCHE-1148772

PATIENT
  Age: 50 Year
  Sex: Male
  Weight: 80.81 kg

DRUGS (6)
  1. OMALIZUMAB [Suspect]
     Indication: ASTHMA
     Dosage: three injections
     Route: 058
     Dates: start: 20121005
  2. PREDNISONE [Concomitant]
  3. SINGULAIR [Concomitant]
  4. ADVAIR [Concomitant]
  5. ZYRTEC-D [Concomitant]
  6. BIAXIN (AUSTRALIA) [Concomitant]

REACTIONS (1)
  - Bronchospasm [Recovered/Resolved]
